FAERS Safety Report 4680947-1 (Version None)
Quarter: 2005Q2

REPORT INFORMATION
  Report Type: 
  Country: None (occurrence: None)
  Receive Date: 20050601
  Receipt Date: 20050601
  Transmission Date: 20051028
  Serious: Yes (Other)
  Sender: FDA-Public Use
  Company Number: None

PATIENT
  Sex: Female
  Weight: 9.5255 kg

DRUGS (1)
  1. ZANTAC [Suspect]
     Indication: GASTROOESOPHAGEAL REFLUX DISEASE
     Dosage: 1 ML 3 X A DAY ORAL
     Route: 048
     Dates: start: 20040305, end: 20051002

REACTIONS (6)
  - CHOKING [None]
  - DYSKINESIA [None]
  - INSOMNIA [None]
  - MOVEMENT DISORDER [None]
  - PSYCHOMOTOR HYPERACTIVITY [None]
  - TARDIVE DYSKINESIA [None]
